FAERS Safety Report 8407235-1 (Version None)
Quarter: 2012Q2

REPORT INFORMATION
  Report Type: 
  Country: None (occurrence: None)
  Receive Date: 20120604
  Receipt Date: 20120521
  Transmission Date: 20120825
  Serious: Yes (Other)
  Sender: FDA-Public Use
  Company Number: US-SANOFI-AVENTIS-2012SA036476

PATIENT
  Age: 54 Year
  Sex: Male
  Weight: 64 kg

DRUGS (6)
  1. LISINOPRIL [Concomitant]
  2. NEBIVOLOL [Concomitant]
  3. PLAVIX [Suspect]
     Indication: STENT PLACEMENT
     Route: 048
     Dates: start: 20060901
  4. RANITIDINE [Concomitant]
     Dates: start: 20120101
  5. PREVACID [Concomitant]
  6. AMLODIPINE [Concomitant]

REACTIONS (3)
  - CORONARY ARTERY OCCLUSION [None]
  - DYSPEPSIA [None]
  - CHEST PAIN [None]
